FAERS Safety Report 10285013 (Version 2)
Quarter: 2014Q3

REPORT INFORMATION
  Report Type: Spontaneous
  Country: RU (occurrence: RU)
  Receive Date: 20140708
  Receipt Date: 20140717
  Transmission Date: 20150326
  Serious: Yes (Life-Threatening, Hospitalization, Other)
  Sender: FDA-Public Use
  Company Number: RU-ASTRAZENECA-2014SE48443

PATIENT
  Age: 76 Year
  Sex: Male

DRUGS (2)
  1. MERONEM [Suspect]
     Active Substance: MEROPENEM
     Indication: PNEUMONIA
     Route: 042
     Dates: start: 201406, end: 20140707
  2. MERONEM [Suspect]
     Active Substance: MEROPENEM
     Indication: ACUTE RESPIRATORY DISTRESS SYNDROME
     Route: 042
     Dates: start: 201406, end: 20140707

REACTIONS (6)
  - Drug ineffective [Unknown]
  - Coronary artery stenosis [Unknown]
  - Infection [Unknown]
  - Cholecystitis [Unknown]
  - Sepsis [Not Recovered/Not Resolved]
  - Haemorrhage [Unknown]

NARRATIVE: CASE EVENT DATE: 20140701
